FAERS Safety Report 7065346-X (Version None)
Quarter: 2010Q4

REPORT INFORMATION
  Report Type: 
  Country: None (occurrence: None)
  Receive Date: 20101019
  Receipt Date: 20101008
  Transmission Date: 20110411
  Serious: Yes (Death, Life-Threatening, Hospitalization, Other)
  Sender: FDA-Public Use
  Company Number: 2010AC000269

PATIENT
  Age: 63 Year
  Sex: Male

DRUGS (24)
  1. DIGOXIN [Suspect]
     Dosage: 0.125 MG; QD; PO
     Route: 048
     Dates: start: 20050701, end: 20071130
  2. DIGOXIN [Suspect]
     Dosage: 0.125 MG; QOD; PO
     Route: 048
     Dates: start: 20071201, end: 20091013
  3. METFORMIN [Concomitant]
  4. ZOCOR [Concomitant]
  5. HYDROCHLOROTHIAZIDE [Concomitant]
  6. LASIX [Concomitant]
  7. GLIPIZIDE [Concomitant]
  8. TOPROL-XL [Concomitant]
  9. QUININE [Concomitant]
  10. DIOVAN [Concomitant]
  11. NEPHRON-FA [Concomitant]
  12. ROCALTROL [Concomitant]
  13. NA BICARB [Concomitant]
  14. RENAGEL [Concomitant]
  15. APIDRA [Concomitant]
  16. NORVASC [Concomitant]
  17. PROTONIX [Concomitant]
  18. METOLAZONE [Concomitant]
  19. TORSEMIDE [Concomitant]
  20. SODIUM MALATE [Concomitant]
  21. ALBUTEROL [Concomitant]
  22. ATROVENT [Concomitant]
  23. ATROPINE [Concomitant]
  24. OXYGEN [Concomitant]

REACTIONS (25)
  - ACUTE MYOCARDIAL INFARCTION [None]
  - ANAEMIA [None]
  - AZOTAEMIA [None]
  - CARDIOMEGALY [None]
  - CAROTID BRUIT [None]
  - CHRONIC OBSTRUCTIVE PULMONARY DISEASE [None]
  - CLUBBING [None]
  - DIALYSIS [None]
  - DUODENAL POLYP [None]
  - ELECTROCARDIOGRAM T WAVE ABNORMAL [None]
  - GASTRITIS [None]
  - GASTROENTERITIS VIRAL [None]
  - HYPOGLYCAEMIA [None]
  - HYPOPARATHYROIDISM [None]
  - LEFT ATRIAL DILATATION [None]
  - OEDEMA PERIPHERAL [None]
  - ORTHOPNOEA [None]
  - PLEURAL EFFUSION [None]
  - PNEUMONIA [None]
  - PRURITUS [None]
  - PULMONARY OEDEMA [None]
  - RENAL FAILURE [None]
  - RESPIRATORY FAILURE [None]
  - SINUS TACHYCARDIA [None]
  - TEMPERATURE INTOLERANCE [None]
